FAERS Safety Report 13050249 (Version 1)
Quarter: 2016Q4

REPORT INFORMATION
  Report Type: Spontaneous
  Country: US (occurrence: US)
  Receive Date: 20161221
  Receipt Date: 20161221
  Transmission Date: 20170207
  Serious: Yes (Hospitalization, Other)
  Sender: FDA-Public Use
  Company Number: US-PROCTER+GAMBLE-GS16152995

PATIENT
  Age: 54 Year
  Sex: Male

DRUGS (1)
  1. DIPHENHYDRAMINE HCL [Suspect]
     Active Substance: DIPHENHYDRAMINE HYDROCHLORIDE
     Indication: SUICIDE ATTEMPT
     Dosage: APPROXIMATELY 2500 MG, 1 ONLY
     Route: 048

REACTIONS (23)
  - Troponin increased [Unknown]
  - Toxicity to various agents [Recovered/Resolved]
  - Delirium [Recovered/Resolved]
  - Blood lactic acid increased [Unknown]
  - Mydriasis [Recovered/Resolved]
  - Pulmonary oedema [Recovered/Resolved]
  - Suicide attempt [Recovered/Resolved]
  - Urinary retention [Recovered/Resolved]
  - Blood pressure increased [Recovered/Resolved]
  - Sinus tachycardia [Recovered/Resolved]
  - Respiratory failure [Recovered/Resolved]
  - Agitation [Recovered/Resolved]
  - Intentional overdose [Recovered/Resolved]
  - Acute kidney injury [Unknown]
  - Blood creatine phosphokinase increased [Unknown]
  - Ejection fraction decreased [Recovered/Resolved]
  - Hypertension [Recovered/Resolved]
  - Depressed level of consciousness [Recovered/Resolved]
  - Erythema [Recovered/Resolved]
  - Blood creatinine increased [Unknown]
  - Aggression [Recovered/Resolved]
  - Rhabdomyolysis [Recovered/Resolved]
  - Stress cardiomyopathy [Unknown]
